FAERS Safety Report 18861540 (Version 1)
Quarter: 2021Q1

REPORT INFORMATION
  Report Type: Spontaneous
  Country: PT (occurrence: PT)
  Receive Date: 20210208
  Receipt Date: 20210208
  Transmission Date: 20210420
  Serious: Yes (Hospitalization, Other)
  Sender: FDA-Public Use
  Company Number: NVSC2021PT009876

PATIENT
  Age: 43 Year
  Sex: Female

DRUGS (1)
  1. TERBINAFINE. [Suspect]
     Active Substance: TERBINAFINE
     Indication: ONYCHOMYCOSIS
     Dosage: 1 QD (2 WEEKS BEFORE)
     Route: 048

REACTIONS (3)
  - Erythema multiforme [Recovered/Resolved]
  - Skin lesion [Recovered/Resolved]
  - Rash pruritic [Recovered/Resolved]
